FAERS Safety Report 9825707 (Version 1)
Quarter: 2013Q4

REPORT INFORMATION
  Report Type: Spontaneous
  Country: US (occurrence: None)
  Receive Date: 20131223
  Receipt Date: 20131223
  Transmission Date: 20140711
  Serious: Yes (Other)
  Sender: FDA-Public Use
  Company Number: 220201LEO

PATIENT
  Age: 64 Year
  Sex: Male

DRUGS (3)
  1. PICATO [Suspect]
     Indication: ACTINIC KERATOSIS
     Dosage: (DAILY), DERMAL
     Dates: start: 20130112, end: 20130114
  2. INSULIN (INSULIN) [Concomitant]
  3. LOTREL (LOTREL) [Concomitant]

REACTIONS (3)
  - Application site scab [None]
  - Application site exfoliation [None]
  - Drug administered at inappropriate site [None]
